FAERS Safety Report 8177036-0 (Version None)
Quarter: 2012Q1

REPORT INFORMATION
  Report Type: 
  Country: None (occurrence: None)
  Receive Date: 20120301
  Receipt Date: 20120222
  Transmission Date: 20120608
  Serious: Yes (Hospitalization)
  Sender: FDA-Public Use
  Company Number: IE-MEDIMMUNE-MEDI-0015048

PATIENT
  Sex: Female
  Weight: 8.74 kg

DRUGS (2)
  1. SYNAGIS [Suspect]
     Route: 030
     Dates: start: 20110928, end: 20110928
  2. BECLOMETHASONE DIPROPIONATE [Concomitant]
     Route: 055

REACTIONS (4)
  - LOWER RESPIRATORY TRACT INFECTION [None]
  - RESPIRATORY RATE INCREASED [None]
  - INFANTILE ASTHMA [None]
  - TACHYCARDIA [None]
